FAERS Safety Report 7314897-9 (Version None)
Quarter: 2011Q1

REPORT INFORMATION
  Report Type: 
  Country: None (occurrence: None)
  Receive Date: 20110225
  Receipt Date: 20100205
  Transmission Date: 20110831
  Serious: No
  Sender: FDA-Public Use
  Company Number: US-MYLANLABS-2010S1001096

PATIENT
  Age: 55 Year
  Sex: Male
  Weight: 90.72 kg

DRUGS (6)
  1. CLARAVIS [Suspect]
     Indication: ACNE
     Route: 048
     Dates: start: 20091104, end: 20100111
  2. AMNESTEEM [Suspect]
     Indication: ACNE
     Route: 048
     Dates: start: 20091104, end: 20100111
  3. LIPITOR [Concomitant]
     Indication: BLOOD CHOLESTEROL INCREASED
  4. ASPIRIN [Concomitant]
     Indication: BLOOD PRESSURE INCREASED
  5. BENICAR [Concomitant]
     Indication: BLOOD PRESSURE INCREASED
  6. CLARAVIS [Suspect]
     Route: 048
     Dates: start: 20091104, end: 20100111

REACTIONS (3)
  - ERYTHEMA [None]
  - SWELLING FACE [None]
  - LOCAL SWELLING [None]
